FAERS Safety Report 22867841 (Version 3)
Quarter: 2023Q4

REPORT INFORMATION
  Report Type: Spontaneous
  Country: SK (occurrence: SK)
  Receive Date: 20230825
  Receipt Date: 20231003
  Transmission Date: 20240110
  Serious: Yes (Other)
  Sender: FDA-Public Use
  Company Number: SK-SAMIL-GLO2023SK004810

PATIENT
  Age: 51 Year
  Sex: Female

DRUGS (7)
  1. BORTEZOMIB [Suspect]
     Active Substance: BORTEZOMIB
     Indication: Amyloidosis
     Dosage: UNK
     Route: 065
  2. MELPHALAN [Suspect]
     Active Substance: MELPHALAN
     Indication: Autologous haematopoietic stem cell transplant
     Dosage: 100 MG/M2 2 DAYS
     Route: 065
     Dates: start: 20220211, end: 20220212
  3. MELPHALAN [Suspect]
     Active Substance: MELPHALAN
     Indication: Amyloidosis
     Dosage: 200 MG/M2 2 DAYS
     Route: 065
     Dates: start: 20220211, end: 20220212
  4. MELPHALAN [Suspect]
     Active Substance: MELPHALAN
     Dosage: 200 MILLIGRAM/SQ. METER, 200 MG/M2
     Route: 065
     Dates: start: 20220214
  5. CYCLOPHOSPHAMIDE [Suspect]
     Active Substance: CYCLOPHOSPHAMIDE
     Indication: Amyloidosis
     Dosage: UNK
     Route: 065
  6. DEXAMETHASONE [Suspect]
     Active Substance: DEXAMETHASONE
     Indication: Amyloidosis
     Dosage: UNK
     Route: 065
  7. VINORELBINE TARTRATE [Suspect]
     Active Substance: VINORELBINE TARTRATE
     Indication: Product used for unknown indication
     Dosage: UNK
     Route: 065

REACTIONS (13)
  - Engraftment syndrome [Recovering/Resolving]
  - Febrile neutropenia [Recovering/Resolving]
  - Escherichia bacteraemia [Recovering/Resolving]
  - Thrombocytopenia [Recovering/Resolving]
  - Cytomegalovirus infection reactivation [Recovering/Resolving]
  - Colitis [Recovering/Resolving]
  - Gastrointestinal haemorrhage [Recovering/Resolving]
  - Off label use [Unknown]
  - Enterocolitis haemorrhagic [Unknown]
  - Neutrophil count increased [Recovering/Resolving]
  - Condition aggravated [Recovering/Resolving]
  - Liver disorder [Recovering/Resolving]
  - Platelet count increased [Recovering/Resolving]

NARRATIVE: CASE EVENT DATE: 20230221
